FAERS Safety Report 22376368 (Version 2)
Quarter: 2023Q2

REPORT INFORMATION
  Report Type: Spontaneous
  Country: US (occurrence: US)
  Receive Date: 20230527
  Receipt Date: 20230527
  Transmission Date: 20230721
  Serious: No
  Sender: FDA-Public Use
  Company Number: US-Dermavant-000541

PATIENT
  Age: 80 Year
  Sex: Male

DRUGS (4)
  1. TAPINAROF [Suspect]
     Active Substance: TAPINAROF
     Indication: Psoriasis
     Dosage: AREA OF APPLICATION: GROIN, BUTTOCKS
     Route: 061
     Dates: start: 20230315
  2. TACROLIMUS [Concomitant]
     Active Substance: TACROLIMUS
  3. Triamcinolone acetonide 0.1 % ointment [Concomitant]
  4. Hydrocortisone 2.5 % ointment [Concomitant]

REACTIONS (1)
  - Application site pruritus [Not Recovered/Not Resolved]

NARRATIVE: CASE EVENT DATE: 20230301
